FAERS Safety Report 25702320 (Version 1)
Quarter: 2025Q3

REPORT INFORMATION
  Report Type: Spontaneous
  Country: US (occurrence: US)
  Receive Date: 20250819
  Receipt Date: 20250819
  Transmission Date: 20251020
  Serious: No
  Sender: BRISTOL-MYERS SQUIBB COMPANY
  Company Number: US-BRISTOL-MYERS SQUIBB COMPANY-2025-115079

PATIENT

DRUGS (2)
  1. INREBIC [Suspect]
     Active Substance: FEDRATINIB HYDROCHLORIDE
     Indication: Product used for unknown indication
  2. INREBIC [Suspect]
     Active Substance: FEDRATINIB HYDROCHLORIDE

REACTIONS (2)
  - Product storage error [Unknown]
  - Product distribution issue [Unknown]
